FAERS Safety Report 16687413 (Version 2)
Quarter: 2019Q3

REPORT INFORMATION
  Report Type: Spontaneous
  Country: IT (occurrence: IT)
  Receive Date: 20190809
  Receipt Date: 20190923
  Transmission Date: 20191004
  Serious: Yes (Hospitalization)
  Sender: FDA-Public Use
  Company Number: IT-JNJFOC-20190809609

PATIENT
  Age: 70 Year
  Sex: Female

DRUGS (1)
  1. DARZALEX [Suspect]
     Active Substance: DARATUMUMAB
     Indication: PLASMA CELL MYELOMA
     Dosage: CYCLICAL
     Route: 042

REACTIONS (1)
  - Hepatic cirrhosis [Recovered/Resolved with Sequelae]

NARRATIVE: CASE EVENT DATE: 20190429
